FAERS Safety Report 23589750 (Version 1)
Quarter: 2024Q1

REPORT INFORMATION
  Report Type: Spontaneous
  Country: US (occurrence: US)
  Receive Date: 20240304
  Receipt Date: 20240304
  Transmission Date: 20240410
  Serious: No
  Sender: FDA-Public Use
  Company Number: US-SA-SAC20240227000564

PATIENT
  Sex: Male
  Weight: 116.11 kg

DRUGS (1)
  1. DUPIXENT [Suspect]
     Active Substance: DUPILUMAB
     Indication: Nasal polyps
     Dosage: 300 MG, QOW
     Route: 058

REACTIONS (3)
  - Nasopharyngitis [Recovering/Resolving]
  - Paranasal sinus discomfort [Recovering/Resolving]
  - Condition aggravated [Unknown]
